FAERS Safety Report 21549972 (Version 1)
Quarter: 2022Q4

REPORT INFORMATION
  Report Type: Spontaneous
  Country: US (occurrence: US)
  Receive Date: 20221103
  Receipt Date: 20221103
  Transmission Date: 20230113
  Serious: No
  Sender: FDA-Public Use
  Company Number: US-BRISTOL-MYERS SQUIBB COMPANY-2022-132091

PATIENT
  Age: 66 Year
  Sex: Male
  Weight: 92.08 kg

DRUGS (4)
  1. REVLIMID [Suspect]
     Active Substance: LENALIDOMIDE
     Indication: Plasma cell myeloma
     Route: 048
     Dates: start: 20221020
  2. ASPIRIN [Concomitant]
     Active Substance: ASPIRIN
     Route: 065
  3. VELCADE [Concomitant]
     Active Substance: BORTEZOMIB
     Route: 065
  4. CIALIS [Concomitant]
     Active Substance: TADALAFIL
     Route: 065

REACTIONS (2)
  - Vomiting [Unknown]
  - Intentional product use issue [Unknown]

NARRATIVE: CASE EVENT DATE: 20221030
